FAERS Safety Report 6726041-7 (Version None)
Quarter: 2010Q2

REPORT INFORMATION
  Report Type: 
  Country: None (occurrence: None)
  Receive Date: 20100514
  Receipt Date: 20100510
  Transmission Date: 20101027
  Serious: Yes (Hospitalization)
  Sender: FDA-Public Use
  Company Number: US-MERCK-1005USA01067

PATIENT
  Age: 74 Year
  Sex: Female

DRUGS (4)
  1. COZAAR [Suspect]
     Indication: BLOOD PRESSURE
     Route: 048
     Dates: start: 20100501, end: 20100508
  2. HYDROCHLOROTHIAZIDE [Concomitant]
     Route: 048
  3. METOPROLOL TARTRATE [Concomitant]
     Route: 065
  4. SIMVASTATIN [Concomitant]
     Route: 048

REACTIONS (5)
  - BLOOD PRESSURE INCREASED [None]
  - CONFUSIONAL STATE [None]
  - DYSPNOEA [None]
  - HEART RATE INCREASED [None]
  - PALPITATIONS [None]
